FAERS Safety Report 24008674 (Version 1)
Quarter: 2024Q2

REPORT INFORMATION
  Report Type: Report from Study
  Country: CA (occurrence: CA)
  Receive Date: 20240625
  Receipt Date: 20240625
  Transmission Date: 20240715
  Serious: Yes (Other)
  Sender: FDA-Public Use
  Company Number: CA-JAMP PHARMA CORPORATION-2024-JAM-CA-01223

PATIENT
  Age: 50 Year
  Sex: Female

DRUGS (1)
  1. SIMLANDI [Suspect]
     Active Substance: ADALIMUMAB-RYVK
     Indication: Crohn^s disease
     Dosage: 40 MG, EVERY OTHER WEEK
     Route: 058
     Dates: start: 20220703

REACTIONS (2)
  - Crohn^s disease [Unknown]
  - Arthralgia [Unknown]
